FAERS Safety Report 6701678-X (Version None)
Quarter: 2010Q2

REPORT INFORMATION
  Report Type: 
  Country: None (occurrence: None)
  Receive Date: 20100429
  Receipt Date: 20100414
  Transmission Date: 20101027
  Serious: Yes (Hospitalization)
  Sender: FDA-Public Use
  Company Number: PHHY2010JP21860

PATIENT
  Age: 34 Year
  Sex: Female

DRUGS (13)
  1. TEGRETOL [Suspect]
     Dosage: 800 MG, DAILY
  2. RISPERDAL [Concomitant]
     Dosage: 07 MG, UNK
  3. WINTERMIN [Concomitant]
     Dosage: 120 MG, UNK
  4. SOFMIN AMEL [Concomitant]
     Dosage: 120 MG, UNK
  5. SOFMIN AMEL [Concomitant]
     Dosage: 175 MG, UNK
  6. AKINETON [Concomitant]
     Dosage: 6 MG, UNK
  7. SERENACE [Concomitant]
     Dosage: 15 MG, UNK
  8. SERENACE [Concomitant]
     Dosage: 14 MG, UNK
  9. BLONANSERIN [Concomitant]
     Dosage: 20 MG, UNK
  10. BLONANSERIN [Concomitant]
     Dosage: 24 MG, UNK
  11. DEPAKENE [Concomitant]
     Dosage: 1.2 G, UNK
  12. VALPROATE SODIUM [Concomitant]
     Dosage: 1200 MG, DAILY
  13. LEVOTHYROXINE [Concomitant]
     Dosage: 24 UG, DAILY

REACTIONS (14)
  - AMNESIA [None]
  - CONFUSIONAL STATE [None]
  - DEPRESSED LEVEL OF CONSCIOUSNESS [None]
  - DYSGEUSIA [None]
  - HYPERPHAGIA [None]
  - HYSTERICAL PSYCHOSIS [None]
  - MANIA [None]
  - PHOBIA [None]
  - PSYCHOTIC DISORDER [None]
  - SCHIZOPHRENIA [None]
  - SOMNOLENCE [None]
  - THERAPEUTIC RESPONSE DECREASED [None]
  - THIRST [None]
  - TRI-IODOTHYRONINE DECREASED [None]
